FAERS Safety Report 5110774-2 (Version None)
Quarter: 2006Q3

REPORT INFORMATION
  Report Type: 
  Country: None (occurrence: None)
  Receive Date: 20060919
  Receipt Date: 20060906
  Transmission Date: 20061208
  Serious: Yes (Hospitalization, Other)
  Sender: FDA-Public Use
  Company Number: 2006041602

PATIENT
  Age: 72 Year
  Sex: Female
  Weight: 91.6266 kg

DRUGS (1)
  1. BEXTRA [Suspect]
     Indication: ARTHRITIS
     Dosage: 10 MG (10 MG, 1 IN 1 D),
     Dates: start: 20030102, end: 20030401

REACTIONS (4)
  - CEREBRAL INFARCTION [None]
  - DYSPHAGIA [None]
  - HEMIANOPIA HOMONYMOUS [None]
  - LACUNAR INFARCTION [None]
